FAERS Safety Report 14099129 (Version 3)
Quarter: 2018Q2

REPORT INFORMATION
  Report Type: Report from Study
  Country: US (occurrence: US)
  Receive Date: 20171017
  Receipt Date: 20180404
  Transmission Date: 20180711
  Serious: Yes (Death, Other)
  Sender: FDA-Public Use
  Company Number: US-AMGEN-USASL2017155550

PATIENT
  Age: 89 Year
  Sex: Male
  Weight: 63.49 kg

DRUGS (15)
  1. PROLIA [Suspect]
     Active Substance: DENOSUMAB
     Dosage: 60 MG/ML, Q6MO
     Route: 065
     Dates: start: 20160829
  2. MULTIVITAMIN HP [Concomitant]
     Dosage: UNK UNK, QD
  3. TUMS [Concomitant]
     Active Substance: CALCIUM CARBONATE
     Dosage: 300 MG, AS NECESSARY
  4. ASPIRIN. [Concomitant]
     Active Substance: ASPIRIN
     Dosage: 81 MG, QD
  5. FISH OIL [Concomitant]
     Active Substance: FISH OIL
     Dosage: 300-1000 MG, 2 TIMES/WK
  6. VITAMIN B12 [Concomitant]
     Active Substance: CYANOCOBALAMIN
     Dosage: 500 MUG, BID
  7. CALCIUM CARBONATE AND VITAMIN D [Concomitant]
     Active Substance: CALCIUM CARBONATE\VITAMIN D
     Dosage: 600 MG, QD
  8. VITAMIN D [Concomitant]
     Active Substance: CHOLECALCIFEROL
     Dosage: 4000 IU, QD
  9. IRON [Concomitant]
     Active Substance: IRON
     Dosage: 1 DF, QD
  10. MYRBETRIQ [Concomitant]
     Active Substance: MIRABEGRON
     Dosage: 50 MG, QD
     Route: 048
  11. TRIAMTERENE AND HYDROCHLOROTHIAZID [Concomitant]
     Active Substance: HYDROCHLOROTHIAZIDE\TRIAMTERENE
     Dosage: 37.5-25 MG, QD
  12. TOPROL XL [Concomitant]
     Active Substance: METOPROLOL SUCCINATE
     Dosage: 50 MG, QD
  13. PROLIA [Suspect]
     Active Substance: DENOSUMAB
     Indication: OSTEOPOROSIS
     Dosage: 60 MG/ML, Q6MO
     Route: 065
  14. PROLIA [Suspect]
     Active Substance: DENOSUMAB
     Dosage: 60 MG/ML, Q6MO
     Route: 065
     Dates: start: 20160224
  15. ZETIA [Concomitant]
     Active Substance: EZETIMIBE
     Dosage: 10 MG, QD

REACTIONS (9)
  - Heart rate irregular [Unknown]
  - Stasis dermatitis [Unknown]
  - Dyspnoea [Unknown]
  - Death [Fatal]
  - Hypersensitivity [Unknown]
  - Nodal osteoarthritis [Unknown]
  - Varicose vein [Unknown]
  - Kyphoscoliosis [Unknown]
  - Back pain [Unknown]

NARRATIVE: CASE EVENT DATE: 20170716
